FAERS Safety Report 16941023 (Version 1)
Quarter: 2019Q4

REPORT INFORMATION
  Report Type: Report from Study
  Country: IT (occurrence: IT)
  Receive Date: 20191021
  Receipt Date: 20191021
  Transmission Date: 20200122
  Serious: Yes (Hospitalization)
  Sender: FDA-Public Use
  Company Number: IT-SA-2019SA178966

PATIENT
  Age: 37 Year
  Sex: Female

DRUGS (2)
  1. ALEMTUZUMAB [Suspect]
     Active Substance: ALEMTUZUMAB
     Indication: RELAPSING-REMITTING MULTIPLE SCLEROSIS
     Dosage: UNK
     Route: 041
     Dates: start: 20190318
  2. ALEMTUZUMAB [Suspect]
     Active Substance: ALEMTUZUMAB
     Dosage: UNK
     Dates: start: 20180305

REACTIONS (2)
  - Meningitis [Recovering/Resolving]
  - Vertebral artery dissection [Not Recovered/Not Resolved]

NARRATIVE: CASE EVENT DATE: 20190621
